FAERS Safety Report 23938935 (Version 1)
Quarter: 2024Q2

REPORT INFORMATION
  Report Type: Report from Study
  Country: FR (occurrence: FR)
  Receive Date: 20240604
  Receipt Date: 20240604
  Transmission Date: 20240715
  Serious: Yes (Hospitalization)
  Sender: FDA-Public Use
  Company Number: None

PATIENT
  Age: 89 Year
  Sex: Male

DRUGS (4)
  1. KRAZATI [Suspect]
     Active Substance: ADAGRASIB
     Indication: Colorectal cancer metastatic
     Dosage: 600 MG, BID (1200 MG QD, 600 MG MORNINGS AND 600 MG EVENINGS)
     Route: 048
     Dates: start: 20230908
  2. KRAZATI [Suspect]
     Active Substance: ADAGRASIB
     Indication: Metastases to lung
     Dosage: 200 MG, BID
     Route: 048
     Dates: start: 20230920, end: 20230927
  3. ERBITUX [Suspect]
     Active Substance: CETUXIMAB
     Indication: Colorectal cancer metastatic
     Dosage: 825 MG Q2WEEK (5 MG/ML SOLUTION)
     Route: 042
     Dates: start: 20230908
  4. ERBITUX [Suspect]
     Active Substance: CETUXIMAB
     Indication: Metastases to lung
     Dosage: UNK, 20% DOSE ADJUSTMENT
     Dates: start: 20230920, end: 20230927

REACTIONS (4)
  - Inflammation [Recovered/Resolved]
  - General physical health deterioration [Recovered/Resolved]
  - Folliculitis [Recovered/Resolved]
  - Asthenia [Unknown]

NARRATIVE: CASE EVENT DATE: 20230920
